FAERS Safety Report 10032925 (Version 1)
Quarter: 2014Q1

REPORT INFORMATION
  Report Type: Spontaneous
  Country: US (occurrence: US)
  Receive Date: 20140324
  Receipt Date: 20140324
  Transmission Date: 20141002
  Serious: Yes (Death, Hospitalization, Other)
  Sender: FDA-Public Use
  Company Number: US-TEVA-469891USA

PATIENT
  Age: 60 Year
  Sex: Female

DRUGS (4)
  1. FLUOROURACIL [Suspect]
     Indication: ADENOCARCINOMA OF COLON
     Dosage: 400MG/M2
     Route: 040
  2. FLUOROURACIL [Suspect]
     Indication: ADENOCARCINOMA OF COLON
     Dosage: 2400MG/M2 OVER 46 HOURS
     Route: 041
  3. FOLINIC ACID [Concomitant]
     Indication: ADENOCARCINOMA OF COLON
     Dosage: 400MG/M2
     Route: 065
  4. OXALIPLATIN [Concomitant]
     Indication: ADENOCARCINOMA OF COLON
     Dosage: 85MG/M2
     Route: 065

REACTIONS (4)
  - Mucosal inflammation [Unknown]
  - Oesophagitis [Unknown]
  - Pancytopenia [Not Recovered/Not Resolved]
  - Death [Fatal]
